FAERS Safety Report 6327885-6 (Version None)
Quarter: 2009Q3

REPORT INFORMATION
  Report Type: 
  Country: None (occurrence: None)
  Receive Date: 20090824
  Receipt Date: 20090819
  Transmission Date: 20100115
  Serious: Yes (Hospitalization)
  Sender: FDA-Public Use
  Company Number: SPV1-2009-01685

PATIENT
  Age: 84 Year
  Sex: Male

DRUGS (1)
  1. FOSRENOL [Suspect]
     Indication: HYPERPHOSPHATAEMIA

REACTIONS (6)
  - CONFUSIONAL STATE [None]
  - DISORIENTATION [None]
  - HYPOPHOSPHATAEMIA [None]
  - LOSS OF CONSCIOUSNESS [None]
  - LOSS OF CONTROL OF LEGS [None]
  - SEPSIS [None]
